FAERS Safety Report 4620601-5 (Version None)
Quarter: 2005Q1

REPORT INFORMATION
  Report Type: 
  Country: None (occurrence: None)
  Receive Date: 20050324
  Receipt Date: 20050311
  Transmission Date: 20050727
  Serious: Yes (Hospitalization, Other)
  Sender: FDA-Public Use
  Company Number: 2005043978

PATIENT
  Age: 41 Year
  Sex: Female
  Weight: 90.7194 kg

DRUGS (12)
  1. CELEBREX [Suspect]
     Indication: ILL-DEFINED DISORDER
     Dosage: ORAL
     Route: 048
  2. NEURONTIN [Concomitant]
     Indication: ARTHRITIS
     Dosage: 300 MG (100 MG, 3 IN 1 D), ORAL
     Route: 048
     Dates: start: 20030101
  3. BEXTRA [Suspect]
     Indication: ILL-DEFINED DISORDER
     Dosage: ORAL
     Route: 048
  4. WARFARIN SODIUM [Suspect]
     Indication: ILL-DEFINED DISORDER
     Dosage: ORAL
     Route: 048
  5. PREDNISONE [Suspect]
     Indication: FIBROMYALGIA
  6. PROPACET 100 [Concomitant]
  7. DYAZIDE [Concomitant]
  8. DIAZEPAM [Concomitant]
  9. AMITRIPTYLINE HCL [Concomitant]
  10. ESOMEPRAZOLE [Concomitant]
  11. FISH OIL [Concomitant]
  12. VITIS VINIFERA EXTRACT [Concomitant]

REACTIONS (11)
  - ANAEMIA [None]
  - BLOOD TEST ABNORMAL [None]
  - DRUG INEFFECTIVE [None]
  - FIBROMYALGIA [None]
  - INSOMNIA [None]
  - PULMONARY THROMBOSIS [None]
  - RESPIRATORY DISORDER [None]
  - RESTLESSNESS [None]
  - SPINAL COLUMN STENOSIS [None]
  - THROMBOSIS [None]
  - WEIGHT INCREASED [None]
